FAERS Safety Report 18789506 (Version 1)
Quarter: 2021Q1

REPORT INFORMATION
  Report Type: Spontaneous
  Country: US (occurrence: US)
  Receive Date: 20210126
  Receipt Date: 20210126
  Transmission Date: 20210419
  Serious: Yes (Other)
  Sender: FDA-Public Use
  Company Number: US-SA-2021SA021374

PATIENT
  Age: 64 Year
  Sex: Male

DRUGS (2)
  1. LOVENOX HP [Concomitant]
     Active Substance: ENOXAPARIN SODIUM
  2. ENOXAPARIN SODIUM. [Suspect]
     Active Substance: ENOXAPARIN SODIUM
     Indication: BLOOD CORTISOL
     Dosage: 60 MG, Q12H

REACTIONS (5)
  - Injection site haemorrhage [Unknown]
  - Thrombosis [Unknown]
  - Weight decreased [Unknown]
  - Injection site bruising [Unknown]
  - Injection site pain [Unknown]
